FAERS Safety Report 5229221-5 (Version None)
Quarter: 2007Q1

REPORT INFORMATION
  Report Type: 
  Country: None (occurrence: None)
  Receive Date: 20070205
  Receipt Date: 20070126
  Transmission Date: 20070707
  Serious: Yes (Hospitalization)
  Sender: FDA-Public Use
  Company Number: US-ABBOTT-07P-163-0357742-00

PATIENT
  Age: 45 Year
  Sex: Female

DRUGS (2)
  1. DEPAKOTE [Suspect]
     Indication: DRUG USE FOR UNKNOWN INDICATION
     Dates: end: 20060618
  2. INTERFERON BETA [Concomitant]
     Indication: DRUG USE FOR UNKNOWN INDICATION
     Dates: end: 20060618

REACTIONS (4)
  - DIABETES MELLITUS [None]
  - PANCREATITIS [None]
  - PNEUMONIA [None]
  - RENAL FAILURE [None]
